FAERS Safety Report 13710734 (Version 1)
Quarter: 2017Q3

REPORT INFORMATION
  Report Type: Spontaneous
  Country: US (occurrence: US)
  Receive Date: 20170701
  Receipt Date: 20170701
  Transmission Date: 20171127
  Serious: Yes (Life-Threatening)
  Sender: FDA-Public Use
  Company Number: None

PATIENT
  Age: 60 Year
  Sex: Female
  Weight: 95 kg

DRUGS (1)
  1. FEBURIC 40 [Suspect]
     Active Substance: FEBUXOSTAT
     Indication: GOUT
     Route: 048
     Dates: start: 20161008, end: 20170531

REACTIONS (6)
  - Hypertension [None]
  - Oedema [None]
  - Ventricular tachycardia [None]
  - Myocardial infarction [None]
  - Angina pectoris [None]
  - Dyspnoea [None]

NARRATIVE: CASE EVENT DATE: 20170601
